FAERS Safety Report 5962470-7 (Version None)
Quarter: 2008Q4

REPORT INFORMATION
  Report Type: 
  Country: None (occurrence: None)
  Receive Date: 20081121
  Receipt Date: 20081111
  Transmission Date: 20090506
  Serious: Yes (Other)
  Sender: FDA-Public Use
  Company Number: CH-PFIZER INC-2008078136

PATIENT
  Sex: Male

DRUGS (5)
  1. LYRICA [Suspect]
     Indication: NEURALGIA
     Route: 048
     Dates: start: 20080816, end: 20080902
  2. NOVALGIN [Concomitant]
     Route: 048
     Dates: end: 20080903
  3. TRITTICO [Concomitant]
  4. TRYPTIZOL [Concomitant]
     Dosage: DAILY DOSE:75MG
     Route: 048
     Dates: start: 20070101, end: 20080903
  5. IMOVANE [Concomitant]
     Dosage: DAILY DOSE:7.5MG
     Route: 048
     Dates: start: 20080815, end: 20080903

REACTIONS (4)
  - EPIDERMOLYSIS [None]
  - MYOPATHY [None]
  - MYOSITIS [None]
  - SKIN LESION [None]
